FAERS Safety Report 26209734 (Version 1)
Quarter: 2025Q4

REPORT INFORMATION
  Report Type: Spontaneous
  Country: JP (occurrence: JP)
  Receive Date: 20251229
  Receipt Date: 20251229
  Transmission Date: 20260117
  Serious: Yes (Death, Other)
  Sender: PFIZER
  Company Number: JP-PFIZER INC-PV202500149056

PATIENT
  Age: 75 Year
  Sex: Male

DRUGS (2)
  1. ELREXFIO [Suspect]
     Active Substance: ELRANATAMAB-BCMM
     Dosage: 12 MG, SINGLE
     Dates: start: 20251215, end: 20251215
  2. ELREXFIO [Suspect]
     Active Substance: ELRANATAMAB-BCMM
     Dosage: 32 MG
     Dates: start: 20251219, end: 20251219

REACTIONS (8)
  - Malignant neoplasm progression [Fatal]
  - Azotaemia [Fatal]
  - Renal failure [Fatal]
  - Cytokine release syndrome [Recovered/Resolved]
  - Hypoxia [Recovered/Resolved]
  - Pyrexia [Recovered/Resolved]
  - Blood glucose decreased [Recovered/Resolved]
  - Decreased appetite [Recovered/Resolved]

NARRATIVE: CASE EVENT DATE: 20251218
